FAERS Safety Report 12464083 (Version 1)
Quarter: 2016Q2

REPORT INFORMATION
  Report Type: Spontaneous
  Country: PL (occurrence: PL)
  Receive Date: 20160614
  Receipt Date: 20160614
  Transmission Date: 20160815
  Serious: Yes (Death, Other)
  Sender: FDA-Public Use
  Company Number: PHHY2016PL078919

PATIENT
  Age: 36 Year
  Sex: Female

DRUGS (24)
  1. OXALIPLATIN. [Suspect]
     Active Substance: OXALIPLATIN
     Indication: METASTASES TO LIVER
     Dosage: 20% DOSAGE REDUCTION
     Route: 065
     Dates: end: 201403
  2. IRINOTECAN [Suspect]
     Active Substance: IRINOTECAN
     Indication: SOLID PSEUDOPAPILLARY TUMOUR OF THE PANCREAS
     Dosage: 180 MG/M2, UNK
     Route: 042
  3. OXALIPLATIN. [Suspect]
     Active Substance: OXALIPLATIN
     Indication: SOLID PSEUDOPAPILLARY TUMOUR OF THE PANCREAS
     Dosage: 85 MG/M2, UNK
     Route: 042
  4. IRINOTECAN [Suspect]
     Active Substance: IRINOTECAN
     Indication: METASTASES TO LIVER
  5. DOXORUBICIN [Suspect]
     Active Substance: DOXORUBICIN
     Indication: SOLID PSEUDOPAPILLARY TUMOUR OF THE PANCREAS
     Dosage: 30 MG/M2, UNK
     Route: 065
  6. 5-FLUOROURACIL [Suspect]
     Active Substance: FLUOROURACIL
     Indication: SOLID PSEUDOPAPILLARY TUMOUR OF THE PANCREAS
     Dosage: 400 MG/M2, UNK
     Route: 040
     Dates: start: 201211
  7. 5-FLUOROURACIL [Suspect]
     Active Substance: FLUOROURACIL
     Indication: METASTASES TO LIVER
     Dosage: 600 MG/M2, UNK
     Route: 042
  8. 5-FLUOROURACIL [Suspect]
     Active Substance: FLUOROURACIL
     Dosage: 400 MG/M2, UNK
     Route: 040
  9. 5-FLUOROURACIL [Suspect]
     Active Substance: FLUOROURACIL
     Dosage: 600 MG/M2, UNK
     Route: 042
  10. LEUCOVORIN. [Suspect]
     Active Substance: LEUCOVORIN
     Dosage: 20% DOSAGE REDUCTION
     Route: 065
     Dates: end: 201403
  11. 5-FLUOROURACIL [Suspect]
     Active Substance: FLUOROURACIL
     Dosage: 400 MG/M2, UNK
     Route: 040
  12. 5-FLUOROURACIL [Suspect]
     Active Substance: FLUOROURACIL
     Dosage: 400 MG/M2, UNK
     Route: 040
  13. LEUCOVORIN. [Suspect]
     Active Substance: LEUCOVORIN
     Dosage: 200 MG/M2, UNK
     Route: 042
  14. GEMCITABINE [Suspect]
     Active Substance: GEMCITABINE\GEMCITABINE HYDROCHLORIDE
     Indication: METASTASES TO LIVER
  15. DOXORUBICIN [Suspect]
     Active Substance: DOXORUBICIN
     Indication: METASTASES TO LIVER
  16. 5-FLUOROURACIL [Suspect]
     Active Substance: FLUOROURACIL
     Dosage: 20% DOSAGE REDUCTION
     Route: 065
     Dates: end: 201403
  17. 5-FLUOROURACIL [Suspect]
     Active Substance: FLUOROURACIL
     Dosage: 800 MG/M2, UNK
     Route: 065
  18. 5-FLUOROURACIL [Suspect]
     Active Substance: FLUOROURACIL
     Dosage: 600 MG/M2, UNK
     Route: 042
  19. LEUCOVORIN. [Suspect]
     Active Substance: LEUCOVORIN
     Indication: SOLID PSEUDOPAPILLARY TUMOUR OF THE PANCREAS
     Dosage: 200 MG/M2, UNK
     Route: 042
     Dates: start: 201211
  20. 5-FLUOROURACIL [Suspect]
     Active Substance: FLUOROURACIL
     Dosage: 600 MG/M2, UNK
     Route: 042
  21. LEUCOVORIN. [Suspect]
     Active Substance: LEUCOVORIN
     Indication: METASTASES TO LIVER
     Dosage: 200 MG/M2, UNK
     Route: 042
  22. MITOMYCIN C [Suspect]
     Active Substance: MITOMYCIN
     Indication: SOLID PSEUDOPAPILLARY TUMOUR OF THE PANCREAS
     Dosage: 8 MG/M2, UNK
     Route: 065
  23. MITOMYCIN C [Suspect]
     Active Substance: MITOMYCIN
     Indication: METASTASES TO LIVER
  24. GEMCITABINE [Suspect]
     Active Substance: GEMCITABINE\GEMCITABINE HYDROCHLORIDE
     Indication: SOLID PSEUDOPAPILLARY TUMOUR OF THE PANCREAS
     Dosage: 1 G/M2, UNK
     Route: 065

REACTIONS (6)
  - Musculoskeletal pain [Unknown]
  - Disease progression [Fatal]
  - Weight decreased [Unknown]
  - Therapeutic response decreased [Unknown]
  - Chills [Unknown]
  - Formication [Unknown]
